FAERS Safety Report 20424704 (Version 1)
Quarter: 2022Q1

REPORT INFORMATION
  Report Type: Report from Study
  Country: US (occurrence: US)
  Receive Date: 20220203
  Receipt Date: 20220203
  Transmission Date: 20220423
  Serious: No
  Sender: FDA-Public Use
  Company Number: US-EXELIXIS-CABO-21037776

PATIENT
  Sex: Male
  Weight: 119.8 kg

DRUGS (4)
  1. CABOMETYX [Suspect]
     Active Substance: CABOZANTINIB S-MALATE
     Indication: Sarcoma
     Dosage: 20 MG, QD
     Route: 048
     Dates: start: 20210122
  2. CABOMETYX [Suspect]
     Active Substance: CABOZANTINIB S-MALATE
     Indication: Acute megakaryocytic leukaemia
     Dosage: 60 MG, QD
     Route: 048
  3. CABOMETYX [Suspect]
     Active Substance: CABOZANTINIB S-MALATE
     Dosage: 20 MG, QD (1/2 OF THE DOSE 40MG DOSAGE)
     Route: 048
  4. CABOMETYX [Suspect]
     Active Substance: CABOZANTINIB S-MALATE
     Dosage: 40 MG, QD (TWO TABLET OF 20 MG)
     Route: 048
     Dates: start: 20210218

REACTIONS (9)
  - Paraesthesia oral [Unknown]
  - Pyrexia [Unknown]
  - Dry throat [Unknown]
  - Blood pressure increased [Unknown]
  - Stomatitis [Unknown]
  - Taste disorder [Unknown]
  - Pain in extremity [Unknown]
  - Dry skin [Unknown]
  - Off label use [Unknown]
